FAERS Safety Report 8095082-2 (Version None)
Quarter: 2012Q1

REPORT INFORMATION
  Report Type: 
  Country: None (occurrence: None)
  Receive Date: 20120131
  Receipt Date: 20120123
  Transmission Date: 20120608
  Serious: Yes (Death, Other)
  Sender: FDA-Public Use
  Company Number: US-BAYER-2011-118645

PATIENT
  Age: 25 Year
  Sex: Female
  Weight: 92.971 kg

DRUGS (2)
  1. YASMIN [Suspect]
     Indication: PREMENSTRUAL SYNDROME
     Dosage: UNK
     Dates: start: 20050601, end: 20070613
  2. YASMIN [Suspect]
     Indication: MENORRHAGIA

REACTIONS (4)
  - CHOLECYSTITIS [None]
  - PULMONARY EMBOLISM [None]
  - CHOLECYSTITIS CHRONIC [None]
  - ABDOMINAL PAIN [None]
